FAERS Safety Report 5741014-9 (Version None)
Quarter: 2008Q2

REPORT INFORMATION
  Report Type: 
  Country: None (occurrence: None)
  Receive Date: 20080513
  Receipt Date: 20080501
  Transmission Date: 20081010
  Serious: Yes (Life-Threatening, Hospitalization)
  Sender: FDA-Public Use
  Company Number: MEDI-0006747

PATIENT
  Age: 6 Month
  Sex: Female
  Weight: 5.24 kg

DRUGS (9)
  1. SYNAGIS [Suspect]
     Indication: ANTIVIRAL PROPHYLAXIS
     Dosage: 78 MG, INTRAMUSCULAR : INTRAMUSCULAR : INTRAMUSCULAR : INTRAMUSCULAR  : INTRAMUSCULAR
     Route: 030
     Dates: start: 20071031, end: 20071121
  2. SYNAGIS [Suspect]
     Indication: ANTIVIRAL PROPHYLAXIS
     Dosage: 78 MG, INTRAMUSCULAR : INTRAMUSCULAR : INTRAMUSCULAR : INTRAMUSCULAR  : INTRAMUSCULAR
     Route: 030
     Dates: start: 20071031
  3. SYNAGIS [Suspect]
     Indication: ANTIVIRAL PROPHYLAXIS
     Dosage: 78 MG, INTRAMUSCULAR : INTRAMUSCULAR : INTRAMUSCULAR : INTRAMUSCULAR  : INTRAMUSCULAR
     Route: 030
     Dates: start: 20071211
  4. SYNAGIS [Suspect]
     Indication: ANTIVIRAL PROPHYLAXIS
     Dosage: 78 MG, INTRAMUSCULAR : INTRAMUSCULAR : INTRAMUSCULAR : INTRAMUSCULAR  : INTRAMUSCULAR
     Route: 030
     Dates: start: 20080116
  5. SYNAGIS [Suspect]
     Indication: ANTIVIRAL PROPHYLAXIS
     Dosage: 78 MG, INTRAMUSCULAR : INTRAMUSCULAR : INTRAMUSCULAR : INTRAMUSCULAR  : INTRAMUSCULAR
     Route: 030
     Dates: start: 20080213
  6. SPIRONOLACTONE [Concomitant]
  7. FUROSEMIDE [Concomitant]
  8. CAPTOPRIL [Concomitant]
  9. SILDENAFIL CITRATE [Concomitant]

REACTIONS (1)
  - RESPIRATORY SYNCYTIAL VIRUS INFECTION [None]
